FAERS Safety Report 12321480 (Version 2)
Quarter: 2016Q2

REPORT INFORMATION
  Report Type: Report from Study
  Country: HN (occurrence: HN)
  Receive Date: 20160502
  Receipt Date: 20160602
  Transmission Date: 20160815
  Serious: Yes (Hospitalization)
  Sender: FDA-Public Use
  Company Number: PHHY2016HN058885

PATIENT
  Sex: Female
  Weight: 68.1 kg

DRUGS (1)
  1. GLIVEC [Suspect]
     Active Substance: IMATINIB MESYLATE
     Indication: CHRONIC MYELOID LEUKAEMIA
     Dosage: 400 MG, QD
     Route: 048
     Dates: start: 200803, end: 20160125

REACTIONS (6)
  - Subarachnoid haemorrhage [Unknown]
  - Vascular rupture [Unknown]
  - Syncope [Unknown]
  - Headache [Unknown]
  - Loss of consciousness [Unknown]
  - Seizure [Unknown]
